FAERS Safety Report 16497866 (Version 3)
Quarter: 2019Q3

REPORT INFORMATION
  Report Type: Spontaneous
  Country: RU (occurrence: RU)
  Receive Date: 20190628
  Receipt Date: 20190801
  Transmission Date: 20191004
  Serious: Yes (Other)
  Sender: FDA-Public Use
  Company Number: PHHY2019RU147078

PATIENT
  Age: 36 Year
  Sex: Male

DRUGS (10)
  1. OPHTALMOFERON [Concomitant]
     Indication: CONJUNCTIVITIS
     Dosage: 1 GTT, 6QD
     Route: 047
     Dates: start: 20190416, end: 20190417
  2. OPHTALMOFERON [Concomitant]
     Dosage: UNK, 6QD INTO BOTH EYES
     Route: 047
     Dates: start: 20190420
  3. ACYCLOVIR. [Concomitant]
     Active Substance: ACYCLOVIR
     Dosage: 400 MG, UNK
     Route: 048
  4. VITABACT [Concomitant]
     Active Substance: PICLOXYDINE DIHYDROCHLORIDE
     Dosage: 1 GTT, 6QD (4-6 TIMES A DAY)
     Route: 047
     Dates: start: 20190420
  5. VITABACT [Concomitant]
     Active Substance: PICLOXYDINE DIHYDROCHLORIDE
     Indication: CONJUNCTIVITIS
     Dosage: 1 GTT, QID
     Route: 047
     Dates: start: 20190416, end: 20190417
  6. BROXINAC [Concomitant]
     Indication: CONJUNCTIVITIS
     Dosage: 1 GTT, BID
     Route: 047
     Dates: start: 20190416, end: 20190417
  7. VITABACT [Concomitant]
     Active Substance: PICLOXYDINE DIHYDROCHLORIDE
     Dosage: 1 GTT, QID
     Route: 047
     Dates: start: 20190420
  8. OPHTALMOFERON [Concomitant]
     Dosage: 2 GTT, 6QD (1-2 DROPS INTO BOTH EYES)
     Route: 047
     Dates: start: 20190418, end: 20190420
  9. VIGAMOX [Suspect]
     Active Substance: MOXIFLOXACIN HYDROCHLORIDE
     Indication: CONJUNCTIVITIS
     Dosage: 1 GTT, TID
     Route: 047
     Dates: start: 20190416, end: 20190417
  10. ACYCLOVIR. [Concomitant]
     Active Substance: ACYCLOVIR
     Indication: CONJUNCTIVITIS
     Dosage: 1 DF, TID
     Route: 048
     Dates: start: 20190416, end: 20190417

REACTIONS (15)
  - Conjunctival follicles [Unknown]
  - Dermatitis bullous [Unknown]
  - Adenoviral conjunctivitis [Recovering/Resolving]
  - Conjunctivitis allergic [Recovering/Resolving]
  - Eyelid oedema [Recovering/Resolving]
  - Corneal oedema [Unknown]
  - Visual impairment [Unknown]
  - Conjunctival hyperaemia [Recovering/Resolving]
  - Foreign body sensation in eyes [Recovering/Resolving]
  - Conjunctival oedema [Recovering/Resolving]
  - Conjunctivitis [Recovering/Resolving]
  - Persistent corneal epithelial defect [Recovering/Resolving]
  - Visual acuity reduced [Unknown]
  - Eye discharge [Recovering/Resolving]
  - Corneal infiltrates [Recovering/Resolving]

NARRATIVE: CASE EVENT DATE: 20190417
